FAERS Safety Report 10409518 (Version 1)
Quarter: 2014Q3

REPORT INFORMATION
  Report Type: Report from Study
  Country: ZA (occurrence: ZA)
  Receive Date: 20140826
  Receipt Date: 20140826
  Transmission Date: 20150326
  Serious: Yes (Hospitalization, Other)
  Sender: FDA-Public Use
  Company Number: ZA-BAYER-2014-061693

PATIENT
  Sex: Female

DRUGS (1)
  1. BETAFERON [Suspect]
     Active Substance: INTERFERON BETA-1B

REACTIONS (8)
  - Multiple sclerosis relapse [None]
  - Influenza like illness [None]
  - Injection site abscess [Recovering/Resolving]
  - Epilepsy [None]
  - Injection site inflammation [Recovering/Resolving]
  - Injection site reaction [None]
  - Injection site bruising [Not Recovered/Not Resolved]
  - Urinary incontinence [None]

NARRATIVE: CASE EVENT DATE: 20100603
